FAERS Safety Report 8261183-9 (Version None)
Quarter: 2012Q2

REPORT INFORMATION
  Report Type: 
  Country: None (occurrence: None)
  Receive Date: 20120402
  Receipt Date: 20120319
  Transmission Date: 20120825
  Serious: Yes (Other)
  Sender: FDA-Public Use
  Company Number: 2012P1007889

PATIENT
  Sex: Male

DRUGS (2)
  1. BLOOD PRESSURE PILLS [Concomitant]
  2. FENTANYL-50 [Suspect]
     Indication: ARTHRITIS
     Dosage: 1 PATCH;Q3D;TDER
     Route: 062
     Dates: start: 20090101

REACTIONS (5)
  - MALAISE [None]
  - PROSTATE CANCER [None]
  - HYPOAESTHESIA [None]
  - NASOPHARYNGITIS [None]
  - FEELING ABNORMAL [None]
